FAERS Safety Report 20010733 (Version 1)
Quarter: 2021Q4

REPORT INFORMATION
  Report Type: Report from Study
  Country: BG (occurrence: BG)
  Receive Date: 20211028
  Receipt Date: 20211028
  Transmission Date: 20220303
  Serious: Yes (Other)
  Sender: FDA-Public Use
  Company Number: BG-JNJFOC-20211042736

PATIENT

DRUGS (17)
  1. TOPAMAX [Suspect]
     Active Substance: TOPIRAMATE
     Indication: Seizure
     Route: 048
  2. TOPAMAX [Suspect]
     Active Substance: TOPIRAMATE
     Indication: Epilepsy
     Route: 048
  3. TOPAMAX [Suspect]
     Active Substance: TOPIRAMATE
     Route: 048
  4. TOPAMAX [Suspect]
     Active Substance: TOPIRAMATE
     Route: 048
  5. TOPAMAX [Suspect]
     Active Substance: TOPIRAMATE
     Route: 048
  6. TOPAMAX [Suspect]
     Active Substance: TOPIRAMATE
     Route: 048
  7. TOPAMAX [Suspect]
     Active Substance: TOPIRAMATE
     Route: 048
  8. VALPROIC ACID [Concomitant]
     Active Substance: VALPROIC ACID
     Dosage: 1000-2000 MG/D
  9. CARBAMAZEPINE [Concomitant]
     Active Substance: CARBAMAZEPINE
     Dosage: 400-1000 MG/D
  10. CLONAZEPAM [Concomitant]
     Active Substance: CLONAZEPAM
  11. PHENYTOIN [Concomitant]
     Active Substance: PHENYTOIN
     Route: 065
  12. OXCARBAZEPINE [Concomitant]
     Active Substance: OXCARBAZEPINE
     Dosage: 1200-1800 MG/D
  13. PHENOBARBITAL [Concomitant]
     Active Substance: PHENOBARBITAL
  14. LEVETIRACETAM [Concomitant]
     Active Substance: LEVETIRACETAM
  15. LAMOTRIGINE [Concomitant]
     Active Substance: LAMOTRIGINE
  16. DIAZEPAM [Concomitant]
     Active Substance: DIAZEPAM
  17. TIAGABINE [Concomitant]
     Active Substance: TIAGABINE

REACTIONS (21)
  - Hallucination, visual [Unknown]
  - Seizure [Unknown]
  - Vertigo [Unknown]
  - Irritability [Unknown]
  - Speech disorder [Unknown]
  - Memory impairment [Unknown]
  - Disturbance in attention [Unknown]
  - Tremor [Unknown]
  - Decreased appetite [Unknown]
  - Asthenia [Unknown]
  - Hypoaesthesia [Unknown]
  - Bradyphrenia [Unknown]
  - Confusional state [Unknown]
  - Somnolence [Unknown]
  - Insomnia [Unknown]
  - Headache [Unknown]
  - Pruritus [Unknown]
  - Gait disturbance [Unknown]
  - Nausea [Unknown]
  - Vomiting [Unknown]
  - Drug ineffective [Unknown]
